FAERS Safety Report 19727325 (Version 1)
Quarter: 2021Q3

REPORT INFORMATION
  Report Type: Spontaneous
  Country: US (occurrence: US)
  Receive Date: 20210819
  Receipt Date: 20210819
  Transmission Date: 20211014
  Serious: No
  Sender: FDA-Public Use
  Company Number: None

PATIENT
  Age: 82 Year
  Sex: Male

DRUGS (1)
  1. REVLIMID [Suspect]
     Active Substance: LENALIDOMIDE
     Indication: PLASMA CELL MYELOMA
     Route: 048
     Dates: start: 20210317

REACTIONS (6)
  - Blood creatine increased [None]
  - Blood immunoglobulin M decreased [None]
  - Red blood cell count decreased [None]
  - Red cell distribution width increased [None]
  - Laboratory test abnormal [None]
  - Lymphocyte count decreased [None]

NARRATIVE: CASE EVENT DATE: 20210817
